FAERS Safety Report 4595674-9 (Version None)
Quarter: 2005Q1

REPORT INFORMATION
  Report Type: 
  Country: None (occurrence: None)
  Receive Date: 20050223
  Receipt Date: 20050223
  Transmission Date: 20050727
  Serious: Yes (Hospitalization)
  Sender: FDA-Public Use
  Company Number: None

PATIENT
  Age: 71 Year
  Sex: Male
  Weight: 137.4399 kg

DRUGS (2)
  1. ZOSYN [Suspect]
     Indication: WOUND INFECTION
     Dosage: ZOSYN IV 335 GM
     Route: 042
  2. VANCOMYCIN [Suspect]

REACTIONS (3)
  - EOSINOPHILIA [None]
  - RASH MACULO-PAPULAR [None]
  - RASH PRURITIC [None]
